FAERS Safety Report 25319929 (Version 1)
Quarter: 2025Q2

REPORT INFORMATION
  Report Type: Spontaneous
  Country: PT (occurrence: PT)
  Receive Date: 20250515
  Receipt Date: 20250515
  Transmission Date: 20250716
  Serious: Yes (Other)
  Sender: MYLAN
  Company Number: PT-ORESUND-25OPAJY0300P

PATIENT
  Age: 11 Year
  Sex: Female

DRUGS (9)
  1. METHOTREXATE [Suspect]
     Active Substance: METHOTREXATE
     Indication: Iridocyclitis
     Dosage: 15 MILLIGRAM, QW
  2. DEXAMETHASONE [Suspect]
     Active Substance: DEXAMETHASONE
     Indication: Iridocyclitis
  3. DEXAMETHASONE [Suspect]
     Active Substance: DEXAMETHASONE
     Dosage: 1 MILLIGRAM PER MILLILITRE, BID (TWICE A DAY)
  4. DEXAMETHASONE [Suspect]
     Active Substance: DEXAMETHASONE
     Dosage: 1 EYE DROP EACH 1 H FOR 3 DAYS QH
  5. DEXAMETHASONE [Suspect]
     Active Substance: DEXAMETHASONE
     Dosage: EVERY 2 H FOR 3 DAYS Q2H
  6. DEXAMETHASONE [Suspect]
     Active Substance: DEXAMETHASONE
  7. DEXAMETHASONE [Suspect]
     Active Substance: DEXAMETHASONE
  8. DEXAMETHASONE [Suspect]
     Active Substance: DEXAMETHASONE
  9. FOLIC ACID [Concomitant]
     Active Substance: FOLIC ACID
     Dosage: 5 MILLIGRAM, QW

REACTIONS (14)
  - Uveitis [Recovering/Resolving]
  - Cushingoid [Recovered/Resolved]
  - Pseudo Cushing^s syndrome [Recovered/Resolved]
  - Secondary adrenocortical insufficiency [Recovered/Resolved]
  - Disease recurrence [Recovering/Resolving]
  - Visual acuity tests abnormal [Recovering/Resolving]
  - Ciliary hyperaemia [Recovering/Resolving]
  - Anterior chamber flare [Recovering/Resolving]
  - Blood cholesterol increased [Recovering/Resolving]
  - High density lipoprotein decreased [Recovering/Resolving]
  - Low density lipoprotein increased [Recovering/Resolving]
  - Drug ineffective [Unknown]
  - Therapy change [Unknown]
  - Off label use [Unknown]
